FAERS Safety Report 8817706 (Version 4)
Quarter: 2012Q4

REPORT INFORMATION
  Report Type: 
  Country: US (occurrence: US)
  Receive Date: 20121001
  Receipt Date: 20121203
  Transmission Date: 20130627
  Serious: Yes (Other)
  Sender: FDA-Public Use
  Company Number: US-PFIZER INC-2012241005

PATIENT
  Age: 65 Year
  Sex: Female
  Weight: 72.56 kg

DRUGS (17)
  1. METFORMIN [Concomitant]
     Indication: PREDIABETES
     Dosage: 500 mg, 1x/day
     Route: 048
  2. ADVAIR [Concomitant]
     Dosage: 250 mcg-50 mcg inhaler, one inhalation twice daily
  3. VENTOLIN HFA [Concomitant]
     Dosage: 90 mcg/actuation l inhaler 8 gm, twice daily, as needed
  4. PANTOPRAZOLE [Concomitant]
     Dosage: 40 mg, 1x/day
     Route: 048
  5. ALBUTEROL SULFATE [Concomitant]
     Indication: SHORTNESS OF BREATH
     Dosage: every 4 to 6 hours as needed
  6. ALBUTEROL SULFATE [Concomitant]
     Indication: WHEEZING
  7. NITROSTAT [Concomitant]
     Indication: CHEST PAIN
     Dosage: 0.4 mg (dissolve 1 tablet), as needed
     Route: 060
  8. LYRICA [Suspect]
     Indication: FIBROMYALGIA
     Dosage: 75 mg, 2x/day
     Route: 048
     Dates: start: 2007
  9. LYRICA [Suspect]
     Dosage: 75 mg, 1x/day
  10. PRISTIQ [Suspect]
     Indication: DEPRESSION
     Dosage: 250 mg, 1x/day (100mg tablet, 2 and 1/2 tablets each morning)
     Route: 048
  11. ASPIRIN [Concomitant]
     Dosage: UNK
  12. LEVOTHROID [Concomitant]
     Dosage: 0.1 mg, 1x/day (or as directed)
  13. METOPROLOL [Concomitant]
     Dosage: 75 mg (50mg tablet 1 and 1/2 tablets), 2x/day
  14. PRAVASTATIN [Concomitant]
     Dosage: 40 mg, 1x/day (at bedtime)
  15. LISINOPRIL [Concomitant]
     Indication: BLOOD PRESSURE HIGH
     Dosage: 10 mg (1/2 of 20mg tablet), 1x/day
  16. AMBIEN [Concomitant]
     Indication: SLEEP DISORDER
     Dosage: 10 mg, 1x/day (at bedtime)
     Route: 048
  17. ISOSORBIDE MONONITRATE [Concomitant]
     Indication: HEART DISORDER
     Dosage: 60 mg, 1x/day
     Route: 048

REACTIONS (4)
  - Dementia Alzheimer^s type [Not Recovered/Not Resolved]
  - Dementia [Not Recovered/Not Resolved]
  - Memory impairment [Not Recovered/Not Resolved]
  - Pain [Unknown]
